FAERS Safety Report 10197412 (Version 1)
Quarter: 2014Q2

REPORT INFORMATION
  Report Type: Spontaneous
  Country: CH (occurrence: CH)
  Receive Date: 20140527
  Receipt Date: 20140527
  Transmission Date: 20141212
  Serious: Yes (Death, Other)
  Sender: FDA-Public Use
  Company Number: CH-PFIZER INC-2014144119

PATIENT
  Age: 63 Year
  Sex: Male

DRUGS (8)
  1. PANTOZOL [Suspect]
     Dosage: 40 MG, 1X/DAY
     Route: 048
  2. NOVALGIN [Suspect]
     Indication: DIABETIC NEUROPATHY
     Dosage: 500 MG, ONE PER THREE DAYS
     Route: 048
     Dates: start: 20140430, end: 20140510
  3. TOREM [Suspect]
     Dosage: 10 MG, 1X/DAY
     Route: 048
  4. XYZAL [Concomitant]
     Dosage: 5 MG, DAILY
  5. TENORMIN [Concomitant]
     Dosage: 100 MG, DAILY
  6. CIPRALEX [Concomitant]
     Dosage: 10 MG, DAILY
  7. DUPHALAC [Concomitant]
     Dosage: 20 ML, PER DAY
  8. MAGNESIOCARD [Concomitant]
     Dosage: 5 MMOL, DAILY

REACTIONS (2)
  - Agranulocytosis [Fatal]
  - Toxic shock syndrome streptococcal [Fatal]
